FAERS Safety Report 5107967-7 (Version None)
Quarter: 2006Q3

REPORT INFORMATION
  Report Type: 
  Country: None (occurrence: None)
  Receive Date: 20060914
  Receipt Date: 20060906
  Transmission Date: 20061208
  Serious: Yes (Hospitalization)
  Sender: FDA-Public Use
  Company Number: 2006107613

PATIENT
  Age: 56 Year
  Sex: Female

DRUGS (4)
  1. XANAX [Suspect]
     Indication: DEPRESSION
     Dosage: 4 MG, ORAL
     Route: 048
     Dates: start: 19990101, end: 20060815
  2. PAROXETINE [Suspect]
     Indication: DEPRESSION
     Dosage: 30 MG, ORAL
     Route: 048
     Dates: start: 19990101, end: 20060815
  3. BETAHISTINE (BETAHISTINE) [Suspect]
     Indication: EXTRAPYRAMIDAL DISORDER
     Dosage: 16 MG, ORAL
     Route: 048
     Dates: start: 19990101, end: 20060815
  4. LISINOPRIL [Concomitant]

REACTIONS (2)
  - CONSTIPATION [None]
  - ILEUS [None]
